FAERS Safety Report 5961024-6 (Version None)
Quarter: 2008Q4

REPORT INFORMATION
  Report Type: 
  Country: None (occurrence: None)
  Receive Date: 20081121
  Receipt Date: 20080528
  Transmission Date: 20090506
  Serious: No
  Sender: FDA-Public Use
  Company Number: A0729930A

PATIENT
  Age: 43 Year
  Sex: Female

DRUGS (2)
  1. LANOXIN [Suspect]
     Indication: CARDIAC FAILURE
     Dosage: .2MG PER DAY
     Route: 048
     Dates: start: 19760101, end: 19810101
  2. ANTIBIOTICS [Concomitant]

REACTIONS (1)
  - DRUG INEFFECTIVE [None]
